FAERS Safety Report 22194993 (Version 1)
Quarter: 2023Q2

REPORT INFORMATION
  Report Type: Spontaneous
  Country: US (occurrence: US)
  Receive Date: 20230411
  Receipt Date: 20230411
  Transmission Date: 20230722
  Serious: Yes (Other)
  Sender: FDA-Public Use
  Company Number: US-009507513-2111USA001609

PATIENT
  Age: 75 Year
  Sex: Male

DRUGS (2)
  1. XARELTO [Suspect]
     Active Substance: RIVAROXABAN
     Indication: Product used for unknown indication
     Route: 048
  2. VERICIGUAT [Suspect]
     Active Substance: VERICIGUAT
     Indication: Cardiovascular disorder
     Dosage: 2.5 MG, UNK
     Route: 048

REACTIONS (2)
  - Angina pectoris [Unknown]
  - Pallor [Unknown]
